FAERS Safety Report 11539106 (Version 3)
Quarter: 2016Q1

REPORT INFORMATION
  Report Type: Report from Study
  Country: CA (occurrence: CA)
  Receive Date: 20150923
  Receipt Date: 20160105
  Transmission Date: 20160525
  Serious: Yes (Other)
  Sender: FDA-Public Use
  Company Number: CA-ROCHE-1607679

PATIENT
  Age: 70 Year
  Sex: Male

DRUGS (30)
  1. COUMADIN [Concomitant]
     Active Substance: WARFARIN SODIUM
  2. ESBRIET [Suspect]
     Active Substance: PIRFENIDONE
     Indication: IDIOPATHIC PULMONARY FIBROSIS
     Route: 048
     Dates: start: 20150320
  3. MYCOPHENOLATE SODIUM [Concomitant]
     Active Substance: MYCOPHENOLATE SODIUM
  4. SEPTRA [Concomitant]
     Active Substance: SULFAMETHOXAZOLE\TRIMETHOPRIM
     Dosage: (M/W/F)
     Route: 065
  5. PLAVIX [Concomitant]
     Active Substance: CLOPIDOGREL BISULFATE
  6. ESBRIET [Suspect]
     Active Substance: PIRFENIDONE
     Route: 048
     Dates: start: 20150403
  7. ESBRIET [Suspect]
     Active Substance: PIRFENIDONE
     Route: 048
     Dates: start: 20150701
  8. LIPITOR [Concomitant]
     Active Substance: ATORVASTATIN CALCIUM
  9. NEXIUM [Concomitant]
     Active Substance: ESOMEPRAZOLE MAGNESIUM
  10. LASIX [Concomitant]
     Active Substance: FUROSEMIDE
  11. ESBRIET [Suspect]
     Active Substance: PIRFENIDONE
     Route: 048
     Dates: start: 20151126
  12. LEVOTHYROXINE. [Concomitant]
     Active Substance: LEVOTHYROXINE
  13. ESBRIET [Suspect]
     Active Substance: PIRFENIDONE
     Route: 048
     Dates: start: 20150327
  14. ESBRIET [Suspect]
     Active Substance: PIRFENIDONE
     Dosage: 267MG-534MG-267MG/DAY
     Route: 048
     Dates: start: 20150901
  15. ESBRIET [Suspect]
     Active Substance: PIRFENIDONE
     Dosage: 534MG-267MG-534MG
     Route: 048
     Dates: start: 20151110
  16. PREDNISONE. [Concomitant]
     Active Substance: PREDNISONE
  17. ALENDRONATE [Concomitant]
     Active Substance: ALENDRONATE SODIUM
  18. ESBRIET [Suspect]
     Active Substance: PIRFENIDONE
     Dosage: 267MG-534MG-534MG/DAY
     Route: 048
     Dates: start: 20150919
  19. ASA [Concomitant]
     Active Substance: ASPIRIN
     Route: 065
  20. MAGNESIUM OXIDE. [Concomitant]
     Active Substance: MAGNESIUM OXIDE
  21. ZOPICLONE [Concomitant]
     Active Substance: ZOPICLONE
  22. RAMIPRIL. [Concomitant]
     Active Substance: RAMIPRIL
  23. AZITHROMYCIN ANHYDROUS. [Concomitant]
     Active Substance: AZITHROMYCIN ANHYDROUS
  24. OXYGEN. [Concomitant]
     Active Substance: OXYGEN
  25. ESBRIET [Suspect]
     Active Substance: PIRFENIDONE
     Route: 048
     Dates: end: 201504
  26. ESBRIET [Suspect]
     Active Substance: PIRFENIDONE
     Route: 048
  27. ESBRIET [Suspect]
     Active Substance: PIRFENIDONE
     Route: 048
     Dates: start: 201504, end: 2015
  28. CYCLOSPORINE. [Concomitant]
     Active Substance: CYCLOSPORINE
  29. CALCIUM CARBONATE. [Concomitant]
     Active Substance: CALCIUM CARBONATE
  30. HUMULIN - NPH [Concomitant]
     Dosage: BID
     Route: 065

REACTIONS (22)
  - Vision blurred [Not Recovered/Not Resolved]
  - Flatulence [Unknown]
  - Dizziness [Not Recovered/Not Resolved]
  - Dyspnoea [Unknown]
  - Blood urine present [Unknown]
  - Fatigue [Not Recovered/Not Resolved]
  - Asthenia [Recovering/Resolving]
  - Ageusia [Unknown]
  - Dizziness [Unknown]
  - Ageusia [Not Recovered/Not Resolved]
  - Gait disturbance [Unknown]
  - Vision blurred [Unknown]
  - Poor quality sleep [Unknown]
  - Fatigue [Unknown]
  - Feeling abnormal [Unknown]
  - Muscular weakness [Unknown]
  - Head discomfort [Not Recovered/Not Resolved]
  - Nausea [Unknown]
  - Dyspepsia [Unknown]
  - Eructation [Unknown]
  - Asthenia [Unknown]
  - Dyspnoea [Not Recovered/Not Resolved]

NARRATIVE: CASE EVENT DATE: 20150327
